FAERS Safety Report 14158846 (Version 1)
Quarter: 2017Q4

REPORT INFORMATION
  Report Type: Spontaneous
  Country: DE (occurrence: DE)
  Receive Date: 20171103
  Receipt Date: 20171103
  Transmission Date: 20180321
  Serious: Yes (Hospitalization)
  Sender: FDA-Public Use
  Company Number: DE-SHIRE-DE201722882

PATIENT

DRUGS (4)
  1. MARIBAVIR [Concomitant]
     Active Substance: MARIBAVIR
     Indication: CYTOMEGALOVIRUS INFECTION
  2. RITALIN [Concomitant]
     Active Substance: METHYLPHENIDATE HYDROCHLORIDE
     Indication: PRODUCT USED FOR UNKNOWN INDICATION
  3. INTUNIV [Suspect]
     Active Substance: GUANFACINE HYDROCHLORIDE
     Indication: ATTENTION DEFICIT/HYPERACTIVITY DISORDER
     Dosage: 1 MG INCREASED UP TO 4 MG DAILY EVENING
     Route: 048
     Dates: start: 20170215, end: 20170829
  4. ELVANSE [Concomitant]
     Active Substance: LISDEXAMFETAMINE DIMESYLATE
     Indication: PRODUCT USED FOR UNKNOWN INDICATION

REACTIONS (7)
  - Electrocardiogram abnormal [Unknown]
  - Abdominal pain upper [Recovered/Resolved]
  - Nausea [Recovered/Resolved]
  - Hyperhidrosis [Unknown]
  - Fatigue [Unknown]
  - Headache [Unknown]
  - Blood pressure increased [Recovering/Resolving]
